FAERS Safety Report 24855494 (Version 4)
Quarter: 2025Q1

REPORT INFORMATION
  Report Type: Report from Study
  Country: US (occurrence: US)
  Receive Date: 20250117
  Receipt Date: 20250226
  Transmission Date: 20250408
  Serious: Yes (Other)
  Sender: UCB
  Company Number: US-UCBSA-2025002402

PATIENT
  Age: 75 Year
  Sex: Male
  Weight: 218 kg

DRUGS (1)
  1. CERTOLIZUMAB PEGOL [Suspect]
     Active Substance: CERTOLIZUMAB PEGOL
     Indication: Rheumatoid arthritis

REACTIONS (2)
  - Cardiac operation [Recovering/Resolving]
  - Bone operation [Unknown]

NARRATIVE: CASE EVENT DATE: 20250102
